FAERS Safety Report 13432186 (Version 1)
Quarter: 2017Q2

REPORT INFORMATION
  Report Type: Spontaneous
  Country: US (occurrence: US)
  Receive Date: 20170412
  Receipt Date: 20170412
  Transmission Date: 20170830
  Serious: No
  Sender: FDA-Public Use
  Company Number: US-JNJFOC-20170307403

PATIENT
  Age: 88 Year
  Sex: Male
  Weight: 79.38 kg

DRUGS (2)
  1. XARELTO [Suspect]
     Active Substance: RIVAROXABAN
     Indication: INTERNATIONAL NORMALISED RATIO DECREASED
     Route: 048
     Dates: start: 20170303
  2. HYDROCODONE [Concomitant]
     Active Substance: HYDROCODONE
     Indication: PAIN
     Dosage: 10-325T
     Route: 065

REACTIONS (5)
  - Diarrhoea [Recovering/Resolving]
  - Hyperhidrosis [Recovering/Resolving]
  - Product use in unapproved indication [Unknown]
  - Off label use [Unknown]
  - Insomnia [Recovering/Resolving]

NARRATIVE: CASE EVENT DATE: 20170303
